FAERS Safety Report 14706737 (Version 2)
Quarter: 2018Q2

REPORT INFORMATION
  Report Type: Spontaneous
  Country: US (occurrence: US)
  Receive Date: 20180402
  Receipt Date: 20180403
  Transmission Date: 20180711
  Serious: No
  Sender: FDA-Public Use
  Company Number: US-B.I. PHARMACEUTICALS,INC./RIDGEFIELD-2018-BI-017163

PATIENT
  Sex: Male

DRUGS (1)
  1. OFEV [Suspect]
     Active Substance: NINTEDANIB
     Indication: IDIOPATHIC PULMONARY FIBROSIS
     Dosage: 1 CAPSULE BID;  FORMULATION: CAPSULE; ?ACTION(S) TAKEN WITH PRODUCT: NOT REPORTED
     Route: 065
     Dates: start: 20180206

REACTIONS (3)
  - Diarrhoea [Unknown]
  - Nausea [Unknown]
  - Abnormal loss of weight [Not Recovered/Not Resolved]

NARRATIVE: CASE EVENT DATE: 2018
